FAERS Safety Report 15171076 (Version 11)
Quarter: 2018Q4

REPORT INFORMATION
  Report Type: Spontaneous
  Country: FR (occurrence: FR)
  Receive Date: 20180720
  Receipt Date: 20181108
  Transmission Date: 20190204
  Serious: Yes (Other)
  Sender: FDA-Public Use
  Company Number: FR-PFIZER INC-2018292436

PATIENT
  Age: 89 Year
  Sex: Male

DRUGS (8)
  1. ZYTIGA [Concomitant]
     Active Substance: ABIRATERONE ACETATE
     Indication: PROSTATE CANCER
     Dosage: 4 TABLETS FROM 250 MG TO 16 HOURS
     Route: 048
  2. ATORVASTATIN CALCIUM. [Suspect]
     Active Substance: ATORVASTATIN CALCIUM
     Indication: ACUTE CORONARY SYNDROME
     Dosage: 80 MG, DAILY (AT NIGHT)
     Route: 048
     Dates: start: 20180521
  3. PREDNISONE. [Concomitant]
     Active Substance: PREDNISONE
     Dosage: 1 TABLET OF 5 MG MORNING AND NOON
     Route: 048
  4. TRIATEC (RAMIPRIL) [Suspect]
     Active Substance: RAMIPRIL
     Indication: ACUTE CORONARY SYNDROME
     Dosage: 1.25 MG, DAILY (IN THE MORNING)
     Route: 048
     Dates: start: 20180521
  5. BISOCE [Suspect]
     Active Substance: BISOPROLOL
     Indication: ACUTE CORONARY SYNDROME
     Dosage: 2.5 MG, DAILY
     Route: 048
     Dates: start: 20180521
  6. PREDNISONE. [Concomitant]
     Active Substance: PREDNISONE
     Indication: PROSTATE CANCER
     Dosage: 5 MG, UNK
     Route: 048
  7. BRILIQUE [Suspect]
     Active Substance: TICAGRELOR
     Indication: ACUTE CORONARY SYNDROME
     Dosage: 180 MG, DAILY
     Route: 048
     Dates: start: 20180521, end: 20180521
  8. KARDEGIC [Suspect]
     Active Substance: ASPIRIN DL-LYSINE
     Indication: ACUTE CORONARY SYNDROME
     Dosage: 75 MG, DAILY (IN THE MORNING)
     Route: 048
     Dates: start: 20180521

REACTIONS (1)
  - Bradycardia [Recovered/Resolved]

NARRATIVE: CASE EVENT DATE: 20180521
